FAERS Safety Report 5724780-8 (Version None)
Quarter: 2008Q2

REPORT INFORMATION
  Report Type: 
  Country: None (occurrence: None)
  Receive Date: 20080501
  Receipt Date: 20080501
  Transmission Date: 20081010
  Serious: Yes (Death)
  Sender: FDA-Public Use
  Company Number: None

PATIENT
  Age: 59 Year
  Sex: Female
  Weight: 68.0396 kg

DRUGS (1)
  1. HEPARIN [Suspect]
     Dates: start: 20071020, end: 20071021

REACTIONS (14)
  - ABDOMINAL PAIN UPPER [None]
  - APNOEA [None]
  - ASTHENIA [None]
  - CHRONIC OBSTRUCTIVE PULMONARY DISEASE [None]
  - DIALYSIS [None]
  - DIARRHOEA [None]
  - DYSSTASIA [None]
  - FALL [None]
  - FATIGUE [None]
  - HEART RATE INCREASED [None]
  - HYPOTENSION [None]
  - ORAL INTAKE REDUCED [None]
  - RENAL FAILURE [None]
  - SEPTIC SHOCK [None]
